FAERS Safety Report 7685230-8 (Version None)
Quarter: 2011Q3

REPORT INFORMATION
  Report Type: 
  Country: None (occurrence: None)
  Receive Date: 20110816
  Receipt Date: 20110810
  Transmission Date: 20111222
  Serious: Yes (Other)
  Sender: FDA-Public Use
  Company Number: DE-ELI_LILLY_AND_COMPANY-DE201107007509

PATIENT
  Age: 56 Year
  Sex: Male
  Weight: 112 kg

DRUGS (10)
  1. BYETTA [Suspect]
     Indication: TYPE 2 DIABETES MELLITUS
     Dosage: 10 UG, BID
     Route: 058
     Dates: start: 20101018, end: 20110728
  2. METOPROLOL SUCCINATE [Concomitant]
     Indication: CORONARY ARTERY DISEASE
     Dosage: 1 DF, QD
     Route: 048
  3. MARCUMAR [Concomitant]
     Indication: CORONARY ARTERY BYPASS
     Dosage: UNK
     Route: 048
  4. SIMAVASTATIN [Concomitant]
  5. PRAVASTATIN [Concomitant]
  6. ASPIRIN [Concomitant]
     Dosage: 100 MG, UNK
  7. DIOVAN [Concomitant]
     Indication: HYPERTENSION
     Dosage: 80 MG, QD
     Route: 048
  8. METFORMIN HCL [Concomitant]
     Indication: DIABETES MELLITUS
     Dosage: 1000 MG, BID
     Route: 048
  9. DICLO-DIVIDO [Concomitant]
  10. PANTOPRAZOLE [Concomitant]

REACTIONS (2)
  - PANCREATITIS [None]
  - HYPERTRIGLYCERIDAEMIA [None]
